FAERS Safety Report 10195083 (Version 1)
Quarter: 2014Q2

REPORT INFORMATION
  Report Type: Spontaneous
  Country: FR (occurrence: FR)
  Receive Date: 20140526
  Receipt Date: 20140526
  Transmission Date: 20141212
  Serious: Yes (Life-Threatening, Hospitalization, Disabling, Other)
  Sender: FDA-Public Use
  Company Number: FR-009507513-1405FRA008265

PATIENT
  Age: 26 Year
  Sex: Female

DRUGS (4)
  1. PUREGON [Suspect]
     Dosage: 75 IU, QD
     Route: 058
     Dates: start: 20140117, end: 20140127
  2. ORGALUTRAN [Suspect]
     Dosage: 1 DF, QD
     Route: 058
     Dates: start: 20140123, end: 20140127
  3. OVITRELLE [Suspect]
     Dosage: 1 DF, ONCE
     Route: 058
     Dates: start: 20140128, end: 20140128
  4. LEVOTHYROX [Concomitant]

REACTIONS (3)
  - Cerebrovascular accident [Recovering/Resolving]
  - Venous thrombosis [Recovered/Resolved]
  - Ovarian hyperstimulation syndrome [Recovered/Resolved]
